FAERS Safety Report 4264688-0 (Version None)
Quarter: 2004Q1

REPORT INFORMATION
  Report Type: 
  Country: None (occurrence: None)
  Receive Date: 20040105
  Receipt Date: 20031217
  Transmission Date: 20041129
  Serious: Yes (Hospitalization)
  Sender: FDA-Public Use
  Company Number: STA-AE-03-MTX-190

PATIENT
  Age: 62 Year
  Sex: Male

DRUGS (1)
  1. METHOTREXATE [Suspect]
     Indication: SARCOIDOSIS
     Dosage: 7.5 TO 20 MG WEEKLY, ORAL
     Route: 048
     Dates: start: 19950201, end: 19950701

REACTIONS (5)
  - CONDITION AGGRAVATED [None]
  - HAEMOGLOBIN DECREASED [None]
  - PLATELET COUNT INCREASED [None]
  - SARCOIDOSIS [None]
  - WHIPPLE'S DISEASE [None]
